FAERS Safety Report 4824868-X (Version None)
Quarter: 2005Q4

REPORT INFORMATION
  Report Type: 
  Country: None (occurrence: None)
  Receive Date: 20051110
  Receipt Date: 20051102
  Transmission Date: 20060501
  Serious: Yes (Hospitalization)
  Sender: FDA-Public Use
  Company Number: CA-BRISTOL-MYERS SQUIBB COMPANY-13165972

PATIENT
  Age: 72 Year
  Sex: Female

DRUGS (14)
  1. CETUXIMAB [Suspect]
     Indication: NON-SMALL CELL LUNG CANCER
     Route: 042
     Dates: start: 20051027, end: 20051027
  2. CARBOPLATIN [Suspect]
     Indication: NON-SMALL CELL LUNG CANCER
     Route: 042
     Dates: start: 20051020, end: 20051020
  3. GEMCITABINE [Suspect]
     Indication: NON-SMALL CELL LUNG CANCER
     Route: 042
     Dates: start: 20051027, end: 20051027
  4. DEXAMETHASONE [Concomitant]
     Dates: start: 20050824
  5. ONDANSETRON [Concomitant]
     Dates: start: 20050824
  6. MINOCYCLINE [Concomitant]
     Dates: start: 20050830
  7. LEVOFLOXACIN [Concomitant]
     Dates: start: 20050913
  8. HYDROCORTISONE [Concomitant]
     Dates: start: 20050913
  9. LOPERAMIDE [Concomitant]
     Dates: start: 20050912
  10. EPOETIN ALFA [Concomitant]
     Dates: start: 20050916
  11. TYLENOL W/ CODEINE NO. 3 [Concomitant]
     Dates: start: 20050906
  12. LOSEC [Concomitant]
     Dates: start: 20050905
  13. CEPHALEXIN [Concomitant]
     Dates: start: 20050904
  14. LEVOTHYROXINE [Concomitant]
     Dates: start: 19700101

REACTIONS (1)
  - HYPOXIA [None]
